FAERS Safety Report 19882997 (Version 3)
Quarter: 2021Q4

REPORT INFORMATION
  Report Type: Spontaneous
  Country: US (occurrence: US)
  Receive Date: 20210926
  Receipt Date: 20211013
  Transmission Date: 20220304
  Serious: No
  Sender: FDA-Public Use
  Company Number: US-ORGANON-O2109USA001602

PATIENT
  Age: 42 Year
  Sex: Female
  Weight: 88.16 kg

DRUGS (1)
  1. NEXPLANON [Suspect]
     Active Substance: ETONOGESTREL
     Indication: Contraception
     Dosage: 1 IMPLANT FOR 3 YEARS
     Dates: start: 20200708, end: 20210917

REACTIONS (4)
  - Implant site pain [Not Recovered/Not Resolved]
  - Device breakage [Recovered/Resolved]
  - Complication associated with device [Unknown]
  - Medical device site discomfort [Unknown]

NARRATIVE: CASE EVENT DATE: 20210801
